FAERS Safety Report 14834741 (Version 6)
Quarter: 2019Q4

REPORT INFORMATION
  Report Type: Report from Study
  Country: US (occurrence: US)
  Receive Date: 20180501
  Receipt Date: 20191113
  Transmission Date: 20200122
  Serious: Yes (Hospitalization, Other)
  Sender: FDA-Public Use
  Company Number: US-ACTELION-A-US2018-171566

PATIENT
  Age: 52 Year
  Sex: Female
  Weight: 70.3 kg

DRUGS (4)
  1. LIPITOR [Concomitant]
     Active Substance: ATORVASTATIN CALCIUM
  2. MORPHINE [Concomitant]
     Active Substance: MORPHINE
  3. OXYCODONE [Concomitant]
     Active Substance: OXYCODONE
  4. OPSUMIT [Suspect]
     Active Substance: MACITENTAN
     Indication: PULMONARY ARTERIAL HYPERTENSION
     Dosage: 10 MG, QD
     Route: 048
     Dates: start: 201712

REACTIONS (35)
  - Viral infection [Unknown]
  - Urinary tract infection [Unknown]
  - Micturition urgency [Unknown]
  - Chronic obstructive pulmonary disease [Unknown]
  - Surgery [Unknown]
  - Fluid imbalance [Unknown]
  - Bronchitis [Recovered/Resolved]
  - Productive cough [Not Recovered/Not Resolved]
  - Gait disturbance [Not Recovered/Not Resolved]
  - Oxygen saturation abnormal [Recovering/Resolving]
  - Asthenia [Not Recovered/Not Resolved]
  - Pneumonia [Recovering/Resolving]
  - Clubbing [Not Recovered/Not Resolved]
  - Fatigue [Not Recovered/Not Resolved]
  - Lumboperitoneal shunt [Unknown]
  - Seizure [Recovered/Resolved]
  - Condition aggravated [Unknown]
  - Hypertrophic osteoarthropathy [Not Recovered/Not Resolved]
  - Device physical property issue [Unknown]
  - Dyspnoea [Not Recovered/Not Resolved]
  - Product dose omission [Unknown]
  - Pneumonia viral [Not Recovered/Not Resolved]
  - Unevaluable event [Unknown]
  - Pyrexia [Unknown]
  - Tooth abscess [Unknown]
  - Bladder pain [Unknown]
  - Sinusitis [Recovered/Resolved]
  - Ear infection [Recovered/Resolved]
  - Anaemia [Not Recovered/Not Resolved]
  - Dysuria [Unknown]
  - Secretion discharge [Unknown]
  - Respiratory distress [Recovered/Resolved]
  - Pulmonary arterial hypertension [Unknown]
  - Contusion [Unknown]
  - Headache [Not Recovered/Not Resolved]

NARRATIVE: CASE EVENT DATE: 2018
